FAERS Safety Report 7981742-8 (Version None)
Quarter: 2011Q4

REPORT INFORMATION
  Report Type: 
  Country: None (occurrence: None)
  Receive Date: 20111213
  Receipt Date: 20111201
  Transmission Date: 20120403
  Serious: Yes (Hospitalization)
  Sender: FDA-Public Use
  Company Number: 1000026057

PATIENT
  Age: 79 Year
  Sex: Male

DRUGS (7)
  1. BLOPRESS (CANDESARTAN CILEXETIL) (CANDESARTAN CILEXETIL) [Concomitant]
  2. GENINAX (GARENOXACIN MESILATE) (GARENOXACIN MESILATE) [Concomitant]
  3. LASIX [Concomitant]
  4. ARICEPT [Concomitant]
  5. MEMANTINE HYDROCHLORIDE [Suspect]
     Indication: DEMENTIA ALZHEIMER'S TYPE
     Dosage: 5 MG (5 MG, 1 IN 1 D), ORAL
     Route: 048
     Dates: start: 20110928, end: 20111004
  6. MEMANTINE HYDROCHLORIDE [Suspect]
     Indication: DEMENTIA ALZHEIMER'S TYPE
     Dosage: 10 MG (10 MG, 1 IN 1 D), ORAL
     Route: 048
     Dates: start: 20111005, end: 20111011
  7. FOSMICIN (FOSFOMYCIN CALCIUM) (FOSFOMYCIN CALCIUM) [Concomitant]

REACTIONS (2)
  - RENAL IMPAIRMENT [None]
  - HEPATIC FUNCTION ABNORMAL [None]
